FAERS Safety Report 7774307-4 (Version None)
Quarter: 2011Q3

REPORT INFORMATION
  Report Type: 
  Country: None (occurrence: None)
  Receive Date: 20110923
  Receipt Date: 20110916
  Transmission Date: 20111222
  Serious: Yes (Other)
  Sender: FDA-Public Use
  Company Number: DE-PFIZER INC-2011223128

PATIENT
  Age: 37 Year
  Sex: Female
  Weight: 50 kg

DRUGS (3)
  1. PANTOPRAZOLE [Suspect]
     Dosage: 20 MG, UNK
     Dates: start: 20080916
  2. FOSTER 100/6 [Concomitant]
     Indication: ASTHMA
     Route: 055
  3. PANTOPRAZOLE [Suspect]
     Dosage: 20 MG, ALTERNATE DAY
     Dates: start: 20110101

REACTIONS (5)
  - DIPLOPIA [None]
  - MUSCLE SPASMS [None]
  - OPHTHALMOPLEGIA [None]
  - MUSCULAR WEAKNESS [None]
  - FATIGUE [None]
